FAERS Safety Report 11135053 (Version 1)
Quarter: 2015Q2

REPORT INFORMATION
  Report Type: Spontaneous
  Country: US (occurrence: US)
  Receive Date: 20150525
  Receipt Date: 20150525
  Transmission Date: 20150821
  Serious: Yes (Hospitalization)
  Sender: FDA-Public Use
  Company Number: US-ASTRAZENECA-2015SE47411

PATIENT
  Sex: Female

DRUGS (1)
  1. PRILOSEC [Suspect]
     Active Substance: OMEPRAZOLE MAGNESIUM
     Route: 048
     Dates: start: 2001, end: 2013

REACTIONS (8)
  - Osteopenia [Unknown]
  - Wrist fracture [Unknown]
  - Bone pain [Unknown]
  - Lower limb fracture [Unknown]
  - Arthralgia [Unknown]
  - Hand fracture [Unknown]
  - Clostridium difficile infection [Unknown]
  - Foot fracture [Unknown]

NARRATIVE: CASE EVENT DATE: 2005
